FAERS Safety Report 5051307-9 (Version None)
Quarter: 2006Q3

REPORT INFORMATION
  Report Type: 
  Country: None (occurrence: None)
  Receive Date: 20060710
  Receipt Date: 20060628
  Transmission Date: 20061208
  Serious: No
  Sender: FDA-Public Use
  Company Number: B0430031A

PATIENT
  Age: 45 Year
  Sex: Male

DRUGS (5)
  1. BUPROPION HCL [Suspect]
  2. LINEZOLID [Suspect]
  3. RISPERIDONE [Suspect]
  4. SERTRALINE [Suspect]
  5. TRAZODONE HCL [Suspect]

REACTIONS (4)
  - CLONUS [None]
  - DRUG INTERACTION [None]
  - SEROTONIN SYNDROME [None]
  - TREMOR [None]
